FAERS Safety Report 8825417 (Version 1)
Quarter: 2012Q4

REPORT INFORMATION
  Report Type: 
  Country: US (occurrence: US)
  Receive Date: 20121004
  Receipt Date: 20121004
  Transmission Date: 20130627
  Serious: Yes (Other)
  Sender: FDA-Public Use
  Company Number: US-US-EMD SERONO, INC.-237452K06USA

PATIENT
  Sex: Female

DRUGS (2)
  1. REBIF [Suspect]
     Indication: MULTIPLE SCLEROSIS
     Route: 058
     Dates: start: 20050815, end: 200608
  2. REBIF [Suspect]
     Route: 058
     Dates: start: 20120924

REACTIONS (3)
  - Ligament injury [Recovered/Resolved]
  - Cartilage atrophy [Not Recovered/Not Resolved]
  - Rheumatoid arthritis [Unknown]
